FAERS Safety Report 24698258 (Version 2)
Quarter: 2025Q1

REPORT INFORMATION
  Report Type: Spontaneous
  Country: BR (occurrence: BR)
  Receive Date: 20241204
  Receipt Date: 20250217
  Transmission Date: 20250408
  Serious: Yes (Life-Threatening, Hospitalization, Disabling, Other)
  Sender: LUNDBECK
  Company Number: BR-SA-2024SA347654

PATIENT
  Age: 14 Year
  Sex: Male

DRUGS (12)
  1. SABRIL [Suspect]
     Active Substance: VIGABATRIN
     Indication: Infantile spasms
     Route: 048
     Dates: start: 2012
  2. SABRIL [Suspect]
     Active Substance: VIGABATRIN
     Route: 048
     Dates: start: 2012
  3. CLOBAZAM [Suspect]
     Active Substance: CLOBAZAM
     Indication: Product used for unknown indication
     Dates: start: 20230522
  4. LAMOTRIGINE [Suspect]
     Active Substance: LAMOTRIGINE
     Indication: Product used for unknown indication
     Dosage: 25 MG, BID
     Dates: start: 20230522
  5. CLOBAZAM [Suspect]
     Active Substance: CLOBAZAM
     Indication: Product used for unknown indication
     Dosage: 10 MG, BID
     Dates: start: 20230803
  6. CANNABIS SATIVA FLOWERING TOP [Concomitant]
     Active Substance: CANNABIS SATIVA FLOWERING TOP
     Indication: Infantile spasms
  7. PHENOBARBITAL [Concomitant]
     Active Substance: PHENOBARBITAL
     Indication: Product used for unknown indication
     Dosage: 100 UNK, BID
  8. ALBUTEROL [Concomitant]
     Active Substance: ALBUTEROL
     Indication: Product used for unknown indication
     Route: 055
  9. ATROVENT [Concomitant]
     Active Substance: IPRATROPIUM BROMIDE
     Indication: Product used for unknown indication
  10. BUDESONIDE [Concomitant]
     Active Substance: BUDESONIDE
     Indication: Product used for unknown indication
     Dosage: 1 JET Q12H
  11. AZITHROMYCIN [Concomitant]
     Active Substance: AZITHROMYCIN
     Indication: Product used for unknown indication
  12. PREDNISOLONE [Concomitant]
     Active Substance: PREDNISOLONE
     Indication: Product used for unknown indication
     Dosage: 10 ML, QD

REACTIONS (32)
  - Oxygen saturation decreased [Recovering/Resolving]
  - Paralysis [Recovering/Resolving]
  - Pneumonia aspiration [Recovering/Resolving]
  - Epilepsy [Recovering/Resolving]
  - Product contamination [Unknown]
  - Poor quality product administered [Unknown]
  - Dysphagia [Recovering/Resolving]
  - Condition aggravated [Recovering/Resolving]
  - Pain [Recovering/Resolving]
  - Asthenia [Recovering/Resolving]
  - Malnutrition [Recovering/Resolving]
  - Joint stiffness [Recovering/Resolving]
  - Cough [Recovering/Resolving]
  - Rhonchi [Recovering/Resolving]
  - Crepitations [Recovering/Resolving]
  - Pyrexia [Recovering/Resolving]
  - Reflux gastritis [Recovering/Resolving]
  - Dyspnoea [Recovering/Resolving]
  - Fatigue [Recovering/Resolving]
  - Shock [Unknown]
  - Fracture [Recovering/Resolving]
  - Trisomy 18 [Unknown]
  - Anxiety [Unknown]
  - Dehydration [Unknown]
  - Salivary hypersecretion [Recovering/Resolving]
  - Pulmonary arterial hypertension [Unknown]
  - Nasal injury [Recovering/Resolving]
  - Musculoskeletal stiffness [Unknown]
  - Decreased appetite [Unknown]
  - Pallor [Unknown]
  - Breath sounds abnormal [Unknown]
  - Restlessness [Unknown]

NARRATIVE: CASE EVENT DATE: 20220101
